FAERS Safety Report 5445119-1 (Version None)
Quarter: 2007Q3

REPORT INFORMATION
  Report Type: 
  Country: None (occurrence: None)
  Receive Date: 20070730
  Receipt Date: 20070411
  Transmission Date: 20080115
  Serious: Yes (Hospitalization)
  Sender: FDA-Public Use
  Company Number: 239044

PATIENT
  Age: 59 Year
  Sex: Female
  Weight: 102 kg

DRUGS (2)
  1. RITUXAN [Suspect]
     Indication: IDIOPATHIC THROMBOCYTOPENIC PURPURA
     Dosage: 800 MG, 1/WEEK, INTRAVENOUS
     Route: 042
     Dates: start: 20070207
  2. PREDNISONE TAB [Concomitant]

REACTIONS (3)
  - DIFFUSE ALVEOLAR DAMAGE [None]
  - HYPOXIA [None]
  - PNEUMONITIS [None]
